FAERS Safety Report 16529636 (Version 2)
Quarter: 2020Q1

REPORT INFORMATION
  Report Type: Spontaneous
  Country: IT (occurrence: IT)
  Receive Date: 20190703
  Receipt Date: 20200320
  Transmission Date: 20200409
  Serious: Yes (Other)
  Sender: FDA-Public Use
  Company Number: IT-CELLTRION INC.-2019IT022448

PATIENT

DRUGS (4)
  1. RITUXIMAB (UNKNOWN) [Suspect]
     Active Substance: RITUXIMAB
     Indication: HEPATITIS
     Dosage: 375 MG/M2 ONCE WEEKLY FOR FOUR DOSES
     Route: 041
  2. RITUXIMAB (UNKNOWN) [Suspect]
     Active Substance: RITUXIMAB
     Indication: AUTOIMMUNE HAEMOLYTIC ANAEMIA
     Dosage: 375 MG/M2, FIFTH AND SIXTH DOSES WERE ADMINISTERED AT THREE-MONTHS INTERVAL
  3. RITUXIMAB (UNKNOWN) [Suspect]
     Active Substance: RITUXIMAB
     Dosage: 375 MG/M2, SEVENTH DOSE ADMINISTERED SEVEN MONTHS AFTER SIXTH DOSE
  4. RITUXIMAB (UNKNOWN) [Suspect]
     Active Substance: RITUXIMAB
     Dosage: 375 MG/M2, EIGHT DOSE ADMINISTERED ONE WEEK AFTER THE SEVENTH DOSE

REACTIONS (3)
  - Gastroenteritis [Unknown]
  - Product use in unapproved indication [Unknown]
  - Pyrexia [Unknown]
